FAERS Safety Report 9857109 (Version 2)
Quarter: 2014Q1

REPORT INFORMATION
  Report Type: Spontaneous
  Country: MA (occurrence: None)
  Receive Date: 20140128
  Receipt Date: 20140307
  Transmission Date: 20141002
  Serious: Yes (Other)
  Sender: FDA-Public Use
  Company Number: 7265267

PATIENT
  Age: 41 Year
  Sex: Female

DRUGS (2)
  1. L-THYROXINE [Suspect]
     Indication: HYPOTHYROIDISM
  2. CALCIUM (CALCIUM) [Suspect]
     Indication: PRODUCT USED FOR UNKNOWN INDICATION

REACTIONS (2)
  - Pituitary tumour [None]
  - Drug interaction [None]
